FAERS Safety Report 10082026 (Version 1)
Quarter: 2014Q2

REPORT INFORMATION
  Report Type: Spontaneous
  Country: US (occurrence: None)
  Receive Date: 20140414
  Receipt Date: 20140414
  Transmission Date: 20141212
  Serious: Yes (Hospitalization)
  Sender: FDA-Public Use
  Company Number: UTC-046897

PATIENT
  Age: 69 Year
  Sex: Female
  Weight: 149.6 kg

DRUGS (1)
  1. REMODULIN [Suspect]
     Indication: PULMONARY ARTERIAL HYPERTENSION
     Dosage: 14.4 UG/KG (0.01 UG/KG, 1 IN 1 MIN)
     Route: 058
     Dates: start: 20110617

REACTIONS (1)
  - Mental status changes [None]
